FAERS Safety Report 10203746 (Version 12)
Quarter: 2015Q1

REPORT INFORMATION
  Report Type: Report from Study
  Country: CA (occurrence: CA)
  Receive Date: 20140529
  Receipt Date: 20150115
  Transmission Date: 20150720
  Serious: Yes (Death, Hospitalization, Other)
  Sender: FDA-Public Use
  Company Number: PHHY2013CA088043

PATIENT
  Age: 34 Year
  Sex: Female

DRUGS (2)
  1. HIDROXIUREA [Suspect]
     Active Substance: HYDROXYUREA
     Indication: PRODUCT USED FOR UNKNOWN INDICATION
     Dosage: 500 MG, QD
     Route: 065
  2. SANDOSTATIN LAR DEPOT [Suspect]
     Active Substance: OCTREOTIDE ACETATE
     Indication: PANCREATIC NEUROENDOCRINE TUMOUR
     Dosage: 30 MG, EVERY 4 WEEKS
     Route: 030
     Dates: start: 20120611

REACTIONS (26)
  - Escherichia infection [Unknown]
  - Platelet count decreased [Unknown]
  - Lung infection [Unknown]
  - Injection site mass [Recovering/Resolving]
  - Stress [Unknown]
  - Neck pain [Unknown]
  - Chills [Unknown]
  - Red blood cell count decreased [Unknown]
  - Pain [Unknown]
  - Injection site pain [Recovered/Resolved]
  - Death [Fatal]
  - Acute myeloid leukaemia [Unknown]
  - Femoral hernia [Unknown]
  - Injection site erythema [Recovered/Resolved]
  - Cough [Unknown]
  - Malaise [Unknown]
  - Dizziness [Unknown]
  - Fatigue [Unknown]
  - Pyrexia [Recovering/Resolving]
  - Haemoglobin decreased [Unknown]
  - Injection site warmth [Recovered/Resolved]
  - White blood cell count decreased [Unknown]
  - Musculoskeletal pain [Unknown]
  - Second primary malignancy [Unknown]
  - Blood pressure systolic increased [Unknown]
  - Headache [Unknown]

NARRATIVE: CASE EVENT DATE: 20131216
